FAERS Safety Report 24293263 (Version 2)
Quarter: 2024Q3

REPORT INFORMATION
  Report Type: Spontaneous
  Country: AT (occurrence: AT)
  Receive Date: 20240906
  Receipt Date: 20240920
  Transmission Date: 20241016
  Serious: Yes (Life-Threatening, Other)
  Sender: FRESENIUS KABI
  Company Number: None

PATIENT
  Age: 67 Year
  Sex: Male
  Weight: 100 kg

DRUGS (11)
  1. PIPERACILLIN AND TAZOBACTAM [Suspect]
     Active Substance: PIPERACILLIN SODIUM\TAZOBACTAM SODIUM
     Indication: Antibiotic therapy
     Dosage: 4.5 G THREE TIMES A DAY?ROUTE OF ADMIN: I.V.
     Dates: start: 20240819, end: 20240822
  2. AMOXICILLIN\CLAVULANATE POTASSIUM [Suspect]
     Active Substance: AMOXICILLIN\CLAVULANATE POTASSIUM
     Indication: Antibiotic therapy
     Dosage: 2.2 G THREE TIMES A DAY
     Dates: start: 20240816, end: 20240819
  3. KEFZOL [Suspect]
     Active Substance: CEFAZOLIN SODIUM
     Indication: Antibiotic therapy
     Dosage: 2 G THREE TIMES A DAY
     Dates: end: 20240826
  4. TICAGRELOR [Concomitant]
     Active Substance: TICAGRELOR
     Indication: Product used for unknown indication
  5. TICAGRELOR [Concomitant]
     Active Substance: TICAGRELOR
  6. ASPIRIN [Concomitant]
     Active Substance: ASPIRIN
  7. ASPIRIN [Concomitant]
     Active Substance: ASPIRIN
     Indication: Product used for unknown indication
  8. PANTOPRAZOLE SODIUM [Concomitant]
     Active Substance: PANTOPRAZOLE SODIUM
  9. PANTOPRAZOLE SODIUM [Concomitant]
     Active Substance: PANTOPRAZOLE SODIUM
     Indication: Product used for unknown indication
  10. LASIX [Concomitant]
     Active Substance: FUROSEMIDE
     Indication: Product used for unknown indication
  11. Novalgin [Concomitant]
     Indication: Product used for unknown indication

REACTIONS (3)
  - Generalised bullous fixed drug eruption [Recovered/Resolved]
  - Toxic epidermal necrolysis [Recovered/Resolved]
  - Pyrexia [Recovered/Resolved]

NARRATIVE: CASE EVENT DATE: 20240821
